FAERS Safety Report 10269690 (Version 1)
Quarter: 2014Q2

REPORT INFORMATION
  Report Type: Spontaneous
  Country: US (occurrence: None)
  Receive Date: 20140626
  Receipt Date: 20140626
  Transmission Date: 20141212
  Serious: Yes (Hospitalization)
  Sender: FDA-Public Use
  Company Number: None

PATIENT
  Age: 7 Year
  Sex: Male
  Weight: 24.95 kg

DRUGS (1)
  1. CEFDINIR [Suspect]

REACTIONS (9)
  - Urticaria [None]
  - Swelling face [None]
  - Arthralgia [None]
  - Joint swelling [None]
  - Pyrexia [None]
  - Chills [None]
  - Asthenia [None]
  - Activities of daily living impaired [None]
  - Gait disturbance [None]
